FAERS Safety Report 4356223-3 (Version None)
Quarter: 2004Q2

REPORT INFORMATION
  Report Type: 
  Country: None (occurrence: None)
  Receive Date: 20040511
  Receipt Date: 20040422
  Transmission Date: 20050107
  Serious: Yes (Hospitalization, Other)
  Sender: FDA-Public Use
  Company Number: US-MERCK-0404USA02013

PATIENT
  Age: 54 Year
  Sex: Female

DRUGS (10)
  1. [THERAPY UNSPECIFIED] [Concomitant]
     Route: 065
  2. CLONAZEPAM [Concomitant]
     Route: 065
  3. DANAZOL [Concomitant]
     Route: 065
  4. AVALIDE [Concomitant]
     Route: 065
  5. SYNTHROID [Concomitant]
     Route: 065
  6. MOBIC [Concomitant]
     Route: 065
  7. EVISTA [Concomitant]
     Route: 065
  8. ZOCOR [Suspect]
     Route: 048
     Dates: start: 20020514, end: 20030711
  9. ZANAFLEX [Concomitant]
     Route: 065
  10. VITAMINS (UNSPECIFIED) [Concomitant]
     Route: 065

REACTIONS (10)
  - DIABETES MELLITUS [None]
  - DYSPEPSIA [None]
  - FIBROMYALGIA [None]
  - GLYCOGEN STORAGE DISEASE TYPE V [None]
  - HAEMATEMESIS [None]
  - HEPATOTOXICITY [None]
  - LIVER DISORDER [None]
  - RENAL FAILURE ACUTE [None]
  - RHABDOMYOLYSIS [None]
  - SEPSIS [None]
